FAERS Safety Report 23488150 (Version 1)
Quarter: 2024Q1

REPORT INFORMATION
  Report Type: Spontaneous
  Country: US (occurrence: US)
  Receive Date: 20240206
  Receipt Date: 20240206
  Transmission Date: 20240410
  Serious: No
  Sender: FDA-Public Use
  Company Number: US-SA-SAC20240130000111

PATIENT
  Sex: Female

DRUGS (9)
  1. DUPIXENT [Suspect]
     Active Substance: DUPILUMAB
     Indication: Dermatitis atopic
     Dosage: 300 MG, QOW
     Route: 058
  2. DICLOFENAC [Concomitant]
     Active Substance: DICLOFENAC
  3. ESTRADIOL [Concomitant]
     Active Substance: ESTRADIOL
  4. EUCRISA [Concomitant]
     Active Substance: CRISABOROLE
     Indication: Dermatitis atopic
  5. KENALOG [Concomitant]
     Active Substance: TRIAMCINOLONE ACETONIDE
  6. PREDNISONE [Concomitant]
     Active Substance: PREDNISONE
  7. TRIAMCINOLONE [Concomitant]
     Active Substance: TRIAMCINOLONE
  8. METHYLPREDNISOLONE [Concomitant]
     Active Substance: METHYLPREDNISOLONE
  9. DESVENLAFAXINE [Concomitant]
     Active Substance: DESVENLAFAXINE

REACTIONS (4)
  - Skin discomfort [Unknown]
  - Sleep disorder due to a general medical condition [Unknown]
  - Rash [Unknown]
  - Drug ineffective [Unknown]
